FAERS Safety Report 8138946-3 (Version None)
Quarter: 2012Q1

REPORT INFORMATION
  Report Type: 
  Country: None (occurrence: None)
  Receive Date: 20120215
  Receipt Date: 20120208
  Transmission Date: 20120608
  Serious: Yes (Other)
  Sender: FDA-Public Use
  Company Number: IE-ABBOTT-12P-229-0900137-00

PATIENT
  Sex: Female

DRUGS (4)
  1. IMURAN [Concomitant]
     Indication: INFLAMMATORY BOWEL DISEASE
     Route: 048
     Dates: start: 20050101
  2. ASACOLON [Concomitant]
     Indication: PRODUCT USED FOR UNKNOWN INDICATION
     Dates: start: 20060101
  3. CALCIUM CARBONATE [Concomitant]
     Indication: PRODUCT USED FOR UNKNOWN INDICATION
  4. HUMIRA [Suspect]
     Indication: INFLAMMATORY BOWEL DISEASE
     Dates: start: 20090119, end: 20111202

REACTIONS (4)
  - PHARYNGEAL DISORDER [None]
  - DYSPHAGIA [None]
  - SINUSITIS [None]
  - SINUS DISORDER [None]
